FAERS Safety Report 5889697-7 (Version None)
Quarter: 2008Q3

REPORT INFORMATION
  Report Type: 
  Country: None (occurrence: None)
  Receive Date: 20080919
  Receipt Date: 20080903
  Transmission Date: 20090109
  Serious: Yes (Life-Threatening, Other)
  Sender: FDA-Public Use
  Company Number: US-BAYER-US-2007-014170

PATIENT
  Age: 42 Year
  Sex: Female
  Weight: 63 kg

DRUGS (3)
  1. BETASERON [Suspect]
     Indication: RELAPSING-REMITTING MULTIPLE SCLEROSIS
     Dosage: UNIT DOSE: 8 MIU
     Route: 058
     Dates: start: 20070101, end: 20070501
  2. BETASERON [Suspect]
     Dosage: UNIT DOSE: 4 MIU
     Route: 058
     Dates: start: 20070311, end: 20070101
  3. COPAXONE [Suspect]

REACTIONS (10)
  - DERMATITIS BULLOUS [None]
  - HYPERSENSITIVITY [None]
  - INJECTION SITE REACTION [None]
  - MUSCLE SPASMS [None]
  - MYALGIA [None]
  - PRURITUS [None]
  - RASH PAPULAR [None]
  - SKIN BURNING SENSATION [None]
  - SKIN EXFOLIATION [None]
  - TOXIC EPIDERMAL NECROLYSIS [None]
